FAERS Safety Report 17975533 (Version 1)
Quarter: 2020Q3

REPORT INFORMATION
  Report Type: Report from Study
  Country: US (occurrence: US)
  Receive Date: 20200702
  Receipt Date: 20200702
  Transmission Date: 20201103
  Serious: Yes (Other)
  Sender: FDA-Public Use
  Company Number: US-BRISTOL-MYERS SQUIBB COMPANY-BMS-2020-051106

PATIENT
  Sex: Male
  Weight: 131.5 kg

DRUGS (3)
  1. APIXABAN [Suspect]
     Active Substance: APIXABAN
     Indication: CEREBROVASCULAR ACCIDENT PROPHYLAXIS
     Dosage: 5 MILLIGRAM, BID
     Route: 048
     Dates: start: 2018
  2. PENTAZOLE [PANTOPRAZOLE] [Concomitant]
     Indication: PRODUCT USED FOR UNKNOWN INDICATION
     Dosage: UNK
     Route: 065
  3. APIXABAN [Suspect]
     Active Substance: APIXABAN
     Dosage: 5 MILLIGRAM, QD
     Route: 048

REACTIONS (8)
  - Hypoaesthesia [Unknown]
  - Back pain [Unknown]
  - Rheumatoid arthritis [Unknown]
  - Contusion [Unknown]
  - Back injury [Unknown]
  - Intentional product misuse [Unknown]
  - Wound haemorrhage [Unknown]
  - Peripheral swelling [Unknown]
